FAERS Safety Report 7397381 (Version 5)
Quarter: 2013Q1

REPORT INFORMATION
  Report Type: Spontaneous
  Country: US (occurrence: US)
  Receive Date: 20100524
  Receipt Date: 20130201
  Transmission Date: 20140127
  Serious: Yes (Other)
  Sender: FDA-Public Use
  Company Number: US-ROCHE-674707

PATIENT
  Age: 19 Year
  Sex: Female
  Weight: 69.9 kg

DRUGS (11)
  1. ACCUTANE [Suspect]
     Indication: ACNE CYSTIC
     Dosage: EVERY OTHER DAY
     Route: 065
     Dates: start: 20021018, end: 200302
  2. ACCUTANE [Suspect]
     Dosage: EVERY OTHER DAY
     Route: 065
  3. AMNESTEEM [Suspect]
     Indication: ACNE CYSTIC
     Route: 065
     Dates: start: 20031115, end: 20031215
  4. AMPICILLIN TRIHYDRATE [Concomitant]
  5. BUTALBITAL [Concomitant]
  6. DIFLUCAN [Concomitant]
  7. IBUPROFEN [Concomitant]
  8. ACETAMINOPHEN/PROPOXYPHENE NAPSYLATE [Concomitant]
  9. ALEVE [Concomitant]
  10. ADVIL [Concomitant]
  11. NAPROSYN [Concomitant]

REACTIONS (11)
  - Crohn^s disease [Unknown]
  - Colitis ulcerative [Unknown]
  - Inflammatory bowel disease [Unknown]
  - Depression [Unknown]
  - Syncope [Unknown]
  - Post concussion syndrome [Unknown]
  - Ovarian cyst [Recovered/Resolved]
  - Conjunctival haemorrhage [Unknown]
  - Eyelid bleeding [Unknown]
  - Oral herpes [Unknown]
  - Eczema [Unknown]
